FAERS Safety Report 18208565 (Version 1)
Quarter: 2020Q3

REPORT INFORMATION
  Report Type: Spontaneous
  Country: US (occurrence: US)
  Receive Date: 20200827
  Receipt Date: 20200827
  Transmission Date: 20201103
  Serious: Yes (Hospitalization, Disabling)
  Sender: FDA-Public Use
  Company Number: None

PATIENT
  Age: 38 Year
  Sex: Female
  Weight: 60.75 kg

DRUGS (3)
  1. MULTIVITAMINS [Concomitant]
     Active Substance: VITAMINS
  2. WOMEN MULTIBVITAMINS [Concomitant]
  3. TCA POWDER [Suspect]
     Active Substance: TRICHLOROACETIC ACID
     Indication: TATTOO EXCISION
     Dosage: ?          QUANTITY:100 GRAMS;OTHER FREQUENCY:AS NEEDED;?
     Route: 061
     Dates: start: 20200703, end: 20200703

REACTIONS (7)
  - Burns third degree [None]
  - Mental disorder [None]
  - Application site discomfort [None]
  - Chemical burn [None]
  - Musculoskeletal disorder [None]
  - Application site pain [None]
  - Application site scar [None]

NARRATIVE: CASE EVENT DATE: 20200702
